FAERS Safety Report 9459962 (Version 3)
Quarter: 2014Q1

REPORT INFORMATION
  Report Type: Spontaneous
  Country: US (occurrence: US)
  Receive Date: 20130815
  Receipt Date: 20140107
  Transmission Date: 20141002
  Serious: Yes (Death)
  Sender: FDA-Public Use
  Company Number: US-INCYTE CORPORATION-2013IN001825

PATIENT
  Age: 78 Year
  Sex: Male

DRUGS (1)
  1. JAKAFI [Suspect]
     Indication: HAEMATOLOGICAL MALIGNANCY
     Dosage: 5 MG, BID
     Route: 048
     Dates: start: 20130308, end: 20130812

REACTIONS (1)
  - Death [Fatal]
